FAERS Safety Report 21863555 (Version 1)
Quarter: 2023Q1

REPORT INFORMATION
  Report Type: Report from Study
  Country: US (occurrence: US)
  Receive Date: 20230116
  Receipt Date: 20230116
  Transmission Date: 20230417
  Serious: Yes (Hospitalization)
  Sender: FDA-Public Use
  Company Number: US-BEH-2023154095

PATIENT
  Age: 51 Year
  Sex: Female

DRUGS (1)
  1. HIZENTRA [Suspect]
     Active Substance: HUMAN IMMUNOGLOBULIN G
     Indication: Primary immunodeficiency syndrome
     Dosage: 10 GRAM, QW
     Route: 058
     Dates: start: 20220401

REACTIONS (4)
  - Respiratory syncytial virus infection [Unknown]
  - Influenza [Unknown]
  - Pyrexia [Unknown]
  - Scarlet fever [Unknown]

NARRATIVE: CASE EVENT DATE: 20221201
